FAERS Safety Report 21422956 (Version 1)
Quarter: 2022Q4

REPORT INFORMATION
  Report Type: Spontaneous
  Country: JP (occurrence: JP)
  Receive Date: 20221007
  Receipt Date: 20221007
  Transmission Date: 20230113
  Serious: Yes (Other)
  Sender: FDA-Public Use
  Company Number: JP-PFIZER INC-202201205110

PATIENT
  Sex: Female

DRUGS (1)
  1. RHEUMATREX [Suspect]
     Active Substance: METHOTREXATE SODIUM
     Dosage: TAKING FOR ABOUT 8 YEARS(EIGHT OR NINE YEARS)
     Route: 048

REACTIONS (4)
  - Fracture [Unknown]
  - Osteoporosis [Unknown]
  - Intentional dose omission [Unknown]
  - Intentional product use issue [Unknown]
